FAERS Safety Report 16352449 (Version 1)
Quarter: 2019Q2

REPORT INFORMATION
  Report Type: Report from Study
  Country: None (occurrence: DE)
  Receive Date: 20190524
  Receipt Date: 20190524
  Transmission Date: 20190711
  Serious: Yes (Hospitalization, Other)
  Sender: FDA-Public Use
  Company Number: DE-ABBVIE-19P-062-2796244-00

PATIENT
  Age: 63 Year
  Sex: Male

DRUGS (4)
  1. LEUPRORELIN [Suspect]
     Active Substance: LEUPROLIDE ACETATE
     Indication: PROSTATE CANCER
     Dosage: 5 MILLIGRAM, Q3MONTHS
     Route: 058
     Dates: start: 20180712
  2. LEUPRORELIN [Suspect]
     Active Substance: LEUPROLIDE ACETATE
     Dosage: 5 MILLIGRAM, Q3MONTHS
     Route: 058
     Dates: start: 20181015
  3. LEUPRORELIN [Suspect]
     Active Substance: LEUPROLIDE ACETATE
     Dosage: 5 MILLIGRAM, Q3MONTHS
     Route: 058
     Dates: start: 20190401
  4. LEUPRORELIN [Suspect]
     Active Substance: LEUPROLIDE ACETATE
     Dosage: 5 MILLIGRAM, Q3MONTHS
     Route: 058
     Dates: start: 20190107

REACTIONS (3)
  - Hot flush [Not Recovered/Not Resolved]
  - Malignant neoplasm progression [Recovering/Resolving]
  - Metastases to spine [Recovering/Resolving]

NARRATIVE: CASE EVENT DATE: 20180730
